FAERS Safety Report 5518121-9 (Version None)
Quarter: 2007Q4

REPORT INFORMATION
  Report Type: 
  Country: None (occurrence: None)
  Receive Date: 20071115
  Receipt Date: 20071106
  Transmission Date: 20080405
  Serious: Yes (Hospitalization, Other)
  Sender: FDA-Public Use
  Company Number: JP-JNJFOC-20071102793

PATIENT
  Age: 6 Decade
  Sex: Female
  Weight: 60 kg

DRUGS (3)
  1. REMICADE [Suspect]
     Indication: RHEUMATOID ARTHRITIS
     Route: 042
  2. RHEUMATREX [Suspect]
     Indication: RHEUMATOID ARTHRITIS
     Route: 048
  3. FOLIAMIN [Concomitant]
     Route: 048

REACTIONS (2)
  - ALOPECIA [None]
  - PSORIASIS [None]
